FAERS Safety Report 10618699 (Version 1)
Quarter: 2014Q4

REPORT INFORMATION
  Report Type: Spontaneous
  Country: US (occurrence: US)
  Receive Date: 20141202
  Receipt Date: 20141202
  Transmission Date: 20150529
  Serious: Yes (Death, Hospitalization)
  Sender: FDA-Public Use
  Company Number: US-BAYER-2014-172606

PATIENT
  Age: 66 Year
  Sex: Female

DRUGS (2)
  1. EOVIST [Suspect]
     Active Substance: GADOXETATE DISODIUM
     Indication: BREAST CANCER FEMALE
  2. EOVIST [Suspect]
     Active Substance: GADOXETATE DISODIUM
     Indication: LIVER SCAN
     Dosage: 6 ML, ONCE
     Dates: start: 20140828, end: 20140828

REACTIONS (3)
  - Respiratory distress [None]
  - Unresponsive to stimuli [None]
  - Death [Fatal]

NARRATIVE: CASE EVENT DATE: 20140828
